FAERS Safety Report 13995818 (Version 1)
Quarter: 2017Q3

REPORT INFORMATION
  Report Type: Report from Study
  Country: CO (occurrence: CO)
  Receive Date: 20170921
  Receipt Date: 20170921
  Transmission Date: 20171128
  Serious: Yes (Hospitalization, Other)
  Sender: FDA-Public Use
  Company Number: PHHY2017CO125845

PATIENT
  Age: 35 Year
  Sex: Male
  Weight: 81 kg

DRUGS (3)
  1. TASIGNA [Suspect]
     Active Substance: NILOTINIB
     Indication: CHRONIC MYELOID LEUKAEMIA
     Dosage: 200 MG, Q12H
     Route: 048
     Dates: start: 20170530
  2. TASIGNA [Suspect]
     Active Substance: NILOTINIB
     Indication: OSTEOSARCOMA
     Dosage: 400 MG, Q12H
     Route: 048
  3. TASIGNA [Suspect]
     Active Substance: NILOTINIB
     Indication: HYPERLEUKOCYTOSIS

REACTIONS (25)
  - Back pain [Unknown]
  - Headache [Recovered/Resolved]
  - Blood uric acid increased [Unknown]
  - Thrombocytopenic purpura [Unknown]
  - Leukostasis syndrome [Unknown]
  - Palpitations [Unknown]
  - Blood pressure systolic increased [Unknown]
  - Headache [Unknown]
  - Platelet count increased [Unknown]
  - Chronic myeloid leukaemia [Unknown]
  - Pleuritic pain [Unknown]
  - Laceration [Unknown]
  - Blast cell crisis [Unknown]
  - Vomiting [Unknown]
  - Angina pectoris [Unknown]
  - Chest pain [Unknown]
  - Pain in extremity [Unknown]
  - Pruritus [Unknown]
  - White blood cell count increased [Unknown]
  - Malignant neoplasm progression [Unknown]
  - Lymphocyte count decreased [Unknown]
  - Musculoskeletal pain [Unknown]
  - Essential hypertension [Unknown]
  - Neutrophil count increased [Unknown]
  - Abdominal pain upper [Unknown]

NARRATIVE: CASE EVENT DATE: 20170823
